FAERS Safety Report 15188876 (Version 1)
Quarter: 2018Q3

REPORT INFORMATION
  Report Type: Spontaneous
  Country: US (occurrence: US)
  Receive Date: 20180724
  Receipt Date: 20180724
  Transmission Date: 20181010
  Serious: No
  Sender: FDA-Public Use
  Company Number: US-009507513-1806USA011867

PATIENT
  Age: 6 Year
  Sex: Male

DRUGS (2)
  1. HYDROCORTONE [Suspect]
     Active Substance: HYDROCORTISONE
     Indication: HORMONE REPLACEMENT THERAPY
     Dosage: 12 MG/M2/DAY
     Route: 048
  2. HYDROCORTONE [Suspect]
     Active Substance: HYDROCORTISONE
     Dosage: 5 MG/M2/DAY
     Route: 048

REACTIONS (2)
  - Insomnia [Unknown]
  - Mood swings [Unknown]
